FAERS Safety Report 19203842 (Version 1)
Quarter: 2021Q2

REPORT INFORMATION
  Report Type: Spontaneous
  Country: NL (occurrence: NL)
  Receive Date: 20210501
  Receipt Date: 20210501
  Transmission Date: 20210717
  Serious: Yes (Hospitalization)
  Sender: FDA-Public Use
  Company Number: NL-ROCHE-2818951

PATIENT
  Sex: Female
  Weight: 69 kg

DRUGS (1)
  1. OCRELIZUMAB. [Suspect]
     Active Substance: OCRELIZUMAB
     Indication: RELAPSING-REMITTING MULTIPLE SCLEROSIS
     Dosage: 1 X PER 6 MAANDEN 600 MG
     Route: 065
     Dates: start: 201805

REACTIONS (7)
  - Mouth swelling [Recovered/Resolved]
  - Dizziness [Recovered/Resolved]
  - Pharyngeal swelling [Recovered/Resolved]
  - Blood pressure decreased [Recovered/Resolved]
  - Head discomfort [Recovered/Resolved]
  - Chest pain [Recovered/Resolved]
  - Dyspnoea [Recovered/Resolved]
